FAERS Safety Report 6224378-1 (Version None)
Quarter: 2009Q2

REPORT INFORMATION
  Report Type: 
  Country: None (occurrence: None)
  Receive Date: 20090612
  Receipt Date: 20090317
  Transmission Date: 20091009
  Serious: No
  Sender: FDA-Public Use
  Company Number: US-ABBOTT-09P-163-0563240-00

PATIENT
  Sex: Female
  Weight: 49.94 kg

DRUGS (4)
  1. HUMIRA [Suspect]
     Indication: PSORIATIC ARTHROPATHY
     Route: 058
     Dates: start: 20090130, end: 20090130
  2. HUMIRA [Suspect]
     Route: 058
     Dates: start: 20090213
  3. INSULIN [Concomitant]
     Indication: DIABETES MELLITUS
  4. TAPAZOLE [Concomitant]
     Indication: BASEDOW'S DISEASE

REACTIONS (7)
  - ARTHROPATHY [None]
  - HEART RATE INCREASED [None]
  - JOINT SWELLING [None]
  - MUSCULOSKELETAL CHEST PAIN [None]
  - NECK PAIN [None]
  - PSORIASIS [None]
  - SKIN DISORDER [None]
